FAERS Safety Report 11690063 (Version 1)
Quarter: 2015Q4

REPORT INFORMATION
  Report Type: Spontaneous
  Country: US (occurrence: None)
  Receive Date: 20151030
  Receipt Date: 20151030
  Transmission Date: 20160304
  Serious: Yes (Hospitalization)
  Sender: FDA-Public Use
  Company Number: None

PATIENT
  Age: 13 Year
  Sex: Female
  Weight: 31 kg

DRUGS (8)
  1. VINCRISTINE SULFATE. [Suspect]
     Active Substance: VINCRISTINE SULFATE
     Dates: end: 20150913
  2. METHOTREXATE [Suspect]
     Active Substance: METHOTREXATE
     Dates: end: 20151006
  3. CYTARABINE. [Suspect]
     Active Substance: CYTARABINE
     Dates: end: 20151005
  4. IFOSFAMIDE. [Suspect]
     Active Substance: IFOSFAMIDE
     Dates: end: 20151006
  5. ONCASPAR [Suspect]
     Active Substance: PEGASPARGASE
     Dates: end: 20150912
  6. DEXAMETHASONE. [Suspect]
     Active Substance: DEXAMETHASONE
     Dates: end: 20151006
  7. HYDROCORTISONE. [Suspect]
     Active Substance: HYDROCORTISONE
     Dates: end: 20151005
  8. DAUNORUBICIN [Suspect]
     Active Substance: DAUNORUBICIN
     Dates: end: 20150619

REACTIONS (4)
  - Blood creatinine abnormal [None]
  - Toxicity to various agents [None]
  - Drug level increased [None]
  - Peripheral motor neuropathy [None]

NARRATIVE: CASE EVENT DATE: 20151007
